FAERS Safety Report 16223368 (Version 1)
Quarter: 2019Q2

REPORT INFORMATION
  Report Type: Spontaneous
  Country: US (occurrence: US)
  Receive Date: 20190420
  Receipt Date: 20190420
  Transmission Date: 20190711
  Serious: Yes (Disabling)
  Sender: FDA-Public Use
  Company Number: None

PATIENT
  Age: 34 Year
  Sex: Male
  Weight: 76.5 kg

DRUGS (3)
  1. FEXOFENADINE HCL (ALLEGRA) [Concomitant]
  2. IBUPROFEN. [Concomitant]
     Active Substance: IBUPROFEN
  3. LEVAQUIN [Suspect]
     Active Substance: LEVOFLOXACIN
     Indication: URINARY TRACT INFECTION
     Dosage: ?          QUANTITY:2 CAPSULE(S);?
     Route: 048
     Dates: start: 20181116, end: 20181117

REACTIONS (9)
  - Dizziness postural [None]
  - Muscle spasms [None]
  - Gait disturbance [None]
  - Muscular weakness [None]
  - Musculoskeletal stiffness [None]
  - Tenosynovitis [None]
  - Quality of life decreased [None]
  - Pain in extremity [None]
  - Tendon pain [None]

NARRATIVE: CASE EVENT DATE: 20181118
